FAERS Safety Report 8552820-X (Version None)
Quarter: 2012Q3

REPORT INFORMATION
  Report Type: 
  Country: None (occurrence: None)
  Receive Date: 20120731
  Receipt Date: 20120726
  Transmission Date: 20120928
  Serious: Yes (Hospitalization)
  Sender: FDA-Public Use
  Company Number: PHHY2012MX013852

PATIENT
  Sex: Female

DRUGS (2)
  1. ERGOCALCIFEROL [Concomitant]
     Dosage: ONE TABLET PER DAY
  2. ZOLEDRONOC ACID [Suspect]
     Indication: OSTEOPOROSIS
     Dosage: 5 MG/100 ML, YEARLY
     Route: 042
     Dates: start: 20070101

REACTIONS (5)
  - FALL [None]
  - FOREARM FRACTURE [None]
  - SKIN BURNING SENSATION [None]
  - ROAD TRAFFIC ACCIDENT [None]
  - GENERAL PHYSICAL CONDITION ABNORMAL [None]
